FAERS Safety Report 23543444 (Version 1)
Quarter: 2024Q1

REPORT INFORMATION
  Report Type: Spontaneous
  Country: SK (occurrence: SK)
  Receive Date: 20240220
  Receipt Date: 20240220
  Transmission Date: 20240410
  Serious: Yes (Other)
  Sender: FDA-Public Use
  Company Number: SK-TAKEDA-2024TUS015179

PATIENT
  Sex: Male

DRUGS (8)
  1. ANTIHEMOPHILIC FACTOR, PEGYLATED (MW 20000) HUMAN SEQUENCE RECOMBINANT [Suspect]
     Active Substance: ANTIHEMOPHILIC FACTOR, PEGYLATED (MW 20000) HUMAN SEQUENCE RECOMBINANT
     Indication: Factor VIII deficiency
     Dosage: UNK
     Route: 065
  2. ANTIHEMOPHILIC FACTOR, PEGYLATED (MW 20000) HUMAN SEQUENCE RECOMBINANT [Suspect]
     Active Substance: ANTIHEMOPHILIC FACTOR, PEGYLATED (MW 20000) HUMAN SEQUENCE RECOMBINANT
     Indication: Factor VIII deficiency
     Dosage: UNK
     Route: 065
  3. ANTIHEMOPHILIC FACTOR, PEGYLATED (MW 20000) HUMAN SEQUENCE RECOMBINANT [Suspect]
     Active Substance: ANTIHEMOPHILIC FACTOR, PEGYLATED (MW 20000) HUMAN SEQUENCE RECOMBINANT
     Indication: Factor VIII deficiency
     Dosage: UNK
     Route: 065
  4. ANTIHEMOPHILIC FACTOR, HUMAN RECOMBINANT\VONICOG ALFA [Suspect]
     Active Substance: ANTIHEMOPHILIC FACTOR, HUMAN RECOMBINANT\VONICOG ALFA
     Indication: Factor VIII deficiency
     Dosage: UNK
     Route: 065
  5. ANTIHEMOPHILIC FACTOR, HUMAN RECOMBINANT\VONICOG ALFA [Suspect]
     Active Substance: ANTIHEMOPHILIC FACTOR, HUMAN RECOMBINANT\VONICOG ALFA
     Indication: Factor VIII deficiency
     Dosage: UNK
     Route: 065
  6. ANTIHEMOPHILIC FACTOR, HUMAN RECOMBINANT\VONICOG ALFA [Suspect]
     Active Substance: ANTIHEMOPHILIC FACTOR, HUMAN RECOMBINANT\VONICOG ALFA
     Indication: Factor VIII deficiency
     Dosage: UNK
     Route: 065
  7. SUSOCTOCOG ALFA [Suspect]
     Active Substance: SUSOCTOCOG ALFA
     Indication: Factor VIII deficiency
     Dosage: UNK
     Route: 065
  8. SUSOCTOCOG ALFA [Suspect]
     Active Substance: SUSOCTOCOG ALFA
     Indication: Factor VIII deficiency
     Dosage: UNK
     Route: 065

REACTIONS (1)
  - Anti factor VIII antibody positive [Unknown]
